FAERS Safety Report 5871420-3 (Version None)
Quarter: 2008Q3

REPORT INFORMATION
  Report Type: 
  Country: None (occurrence: None)
  Receive Date: 20080905
  Receipt Date: 20080826
  Transmission Date: 20090109
  Serious: Yes (Hospitalization, Other)
  Sender: FDA-Public Use
  Company Number: PHEH2007US03275

PATIENT
  Sex: Male

DRUGS (20)
  1. ZOMETA [Suspect]
  2. AREDIA [Suspect]
  3. MS CONTIN [Concomitant]
     Indication: PAIN
     Dosage: 100 MG, UNK
  4. OXYCONTIN [Concomitant]
     Indication: PAIN
  5. ZANAFLEX [Concomitant]
     Dosage: 4 MG, UNK
  6. LIDOCAINE [Concomitant]
  7. NEUROTON [Concomitant]
     Dosage: 300 MG, UNK
  8. AMBIEN [Concomitant]
     Dosage: 10 MG, UNK
  9. ZOLOFT [Concomitant]
     Dosage: 50 MG, UNK
  10. PHYSICAL THERAPY [Concomitant]
  11. STEROIDS NOS [Concomitant]
  12. CHEMOTHERAPEUTICS NOS [Concomitant]
  13. RADIATION THERAPY [Concomitant]
  14. ZITHROMAX [Concomitant]
  15. METFORMIN HCL [Concomitant]
     Dosage: 50 MG, UNK
  16. FLOMAX [Concomitant]
     Dosage: 0.4 UNK, UNK
  17. ATENOLOL [Concomitant]
     Dosage: 100 MG, UNK
  18. NORVASC [Concomitant]
     Dosage: 5 MG, UNK
  19. ALLEGRA [Concomitant]
     Dosage: 180 MG, UNK
  20. NEXIUM [Concomitant]
     Dosage: 40 MG, UNK

REACTIONS (22)
  - ANXIETY [None]
  - ARTHRALGIA [None]
  - ASTHENIA [None]
  - BACK PAIN [None]
  - BONE CANCER METASTATIC [None]
  - CONDITION AGGRAVATED [None]
  - CONFUSIONAL STATE [None]
  - DECREASED INTEREST [None]
  - DEPRESSION [None]
  - DYSPNOEA [None]
  - GENERAL PHYSICAL HEALTH DETERIORATION [None]
  - HALLUCINATION [None]
  - MALIGNANT TUMOUR EXCISION [None]
  - MOBILITY DECREASED [None]
  - MULTIPLE MYELOMA [None]
  - MYOCLONUS [None]
  - OSTEONECROSIS [None]
  - PAIN [None]
  - PARAPLEGIA [None]
  - SLEEP DISORDER DUE TO A GENERAL MEDICAL CONDITION [None]
  - SPINAL COMPRESSION FRACTURE [None]
  - SPINAL FUSION SURGERY [None]
